FAERS Safety Report 9836663 (Version 1)
Quarter: 2014Q1

REPORT INFORMATION
  Report Type: Report from Study
  Country: CO (occurrence: CO)
  Receive Date: 20140123
  Receipt Date: 20140123
  Transmission Date: 20141002
  Serious: Yes (Death)
  Sender: FDA-Public Use
  Company Number: CO-ROCHE-1334176

PATIENT
  Age: 63 Year
  Sex: Female

DRUGS (16)
  1. RITUXIMAB [Suspect]
     Indication: DIFFUSE LARGE B-CELL LYMPHOMA
     Route: 042
     Dates: start: 20130822
  2. RHUPH20/RITUXIMAB [Suspect]
     Indication: DIFFUSE LARGE B-CELL LYMPHOMA
     Dosage: LAST DOSE PRIOR TO SAE ON 20/DEC/2013.
     Route: 058
     Dates: start: 20130911
  3. CYCLOPHOSPHAMIDE [Suspect]
     Indication: DIFFUSE LARGE B-CELL LYMPHOMA
     Route: 065
     Dates: start: 20130822, end: 20131220
  4. DOXORUBICIN [Suspect]
     Indication: DIFFUSE LARGE B-CELL LYMPHOMA
     Route: 065
     Dates: start: 20130822, end: 20131220
  5. VINCRISTINE [Suspect]
     Indication: DIFFUSE LARGE B-CELL LYMPHOMA
     Route: 065
     Dates: start: 20130822, end: 20131220
  6. PREDNISONE [Suspect]
     Indication: DIFFUSE LARGE B-CELL LYMPHOMA
     Route: 065
  7. RED BLOOD TRANSFUSION [Concomitant]
     Dosage: 2 UNITS, AT NIGHT
     Route: 042
     Dates: start: 20131102, end: 20131102
  8. RED BLOOD TRANSFUSION [Concomitant]
     Dosage: 2 UNITS, AT NIGHT
     Route: 042
     Dates: start: 20131014, end: 20131014
  9. ENALAPRIL [Concomitant]
     Route: 065
     Dates: start: 20131116, end: 20131230
  10. FOLIC ACID [Concomitant]
     Route: 065
     Dates: start: 20131116, end: 20131230
  11. OMEPRAZOLE [Concomitant]
     Indication: GASTRITIS PROPHYLAXIS
     Route: 048
     Dates: start: 20131116, end: 20131230
  12. AMLODIPINE [Concomitant]
     Route: 048
     Dates: start: 20130807, end: 20131230
  13. AMLODIPINE [Concomitant]
     Route: 048
     Dates: start: 20130807
  14. NADROPARINE [Concomitant]
     Route: 058
     Dates: start: 20130807
  15. LOSARTAN [Concomitant]
     Route: 048
     Dates: start: 201307
  16. SPIRONOLACTONE [Concomitant]
     Route: 048
     Dates: start: 20131129

REACTIONS (1)
  - Diarrhoea [Fatal]
